FAERS Safety Report 11031862 (Version 5)
Quarter: 2016Q3

REPORT INFORMATION
  Report Type: Spontaneous
  Country: US (occurrence: US)
  Receive Date: 20150415
  Receipt Date: 20160726
  Transmission Date: 20161109
  Serious: Yes (Hospitalization, Other)
  Sender: FDA-Public Use
  Company Number: US-009507513-1107USA01498

PATIENT
  Sex: Male

DRUGS (3)
  1. ADVAIR HFA [Concomitant]
     Active Substance: FLUTICASONE PROPIONATE\SALMETEROL XINAFOATE
     Indication: ASTHMA
     Route: 055
  2. FENOFIBRATE. [Concomitant]
     Active Substance: FENOFIBRATE
     Indication: PRODUCT USED FOR UNKNOWN INDICATION
     Dosage: UNK MG, UNK
     Route: 048
  3. PROPECIA [Suspect]
     Active Substance: FINASTERIDE
     Indication: ANDROGENETIC ALOPECIA
     Dosage: 1 MG, QD
     Route: 048
     Dates: start: 20071221, end: 201103

REACTIONS (23)
  - Male sexual dysfunction [Not Recovered/Not Resolved]
  - Brain injury [Not Recovered/Not Resolved]
  - Depression [Unknown]
  - Prostatic specific antigen increased [Unknown]
  - Penis injury [Not Recovered/Not Resolved]
  - Corticosteroid binding globulin decreased [Unknown]
  - Penile size reduced [Unknown]
  - Primary hypogonadism [Unknown]
  - Blood testosterone decreased [Unknown]
  - Prostatitis [Unknown]
  - Hormone level abnormal [Not Recovered/Not Resolved]
  - Endocrine disorder [Not Recovered/Not Resolved]
  - Cholecystectomy [Unknown]
  - Arteriosclerosis [Unknown]
  - Renal cyst [Unknown]
  - Loss of libido [Unknown]
  - Erectile dysfunction [Not Recovered/Not Resolved]
  - Urinary retention [Recovered/Resolved]
  - Osteoarthritis [Unknown]
  - Diverticulum [Unknown]
  - Prostatomegaly [Unknown]
  - Ejaculation disorder [Unknown]
  - Polycythaemia [Unknown]

NARRATIVE: CASE EVENT DATE: 200804
